FAERS Safety Report 18983274 (Version 1)
Quarter: 2021Q1

REPORT INFORMATION
  Report Type: Spontaneous
  Country: PK (occurrence: PK)
  Receive Date: 20210309
  Receipt Date: 20210309
  Transmission Date: 20210420
  Serious: Yes (Disabling)
  Sender: FDA-Public Use
  Company Number: PK-APOTEX-2021AP005243

PATIENT
  Age: 33 Year
  Sex: Male

DRUGS (1)
  1. SEROXAT [Suspect]
     Active Substance: PAROXETINE HYDROCHLORIDE
     Indication: DEPRESSION
     Dosage: 1 DOSAGE FORM, BID
     Route: 048
     Dates: start: 20201218

REACTIONS (1)
  - Cyanopsia [Unknown]

NARRATIVE: CASE EVENT DATE: 20201228
